FAERS Safety Report 23820288 (Version 1)
Quarter: 2024Q2

REPORT INFORMATION
  Report Type: Spontaneous
  Country: EG (occurrence: EG)
  Receive Date: 20240506
  Receipt Date: 20240506
  Transmission Date: 20240716
  Serious: Yes (Death)
  Sender: FDA-Public Use
  Company Number: EG-PFIZER INC-PV202400058402

PATIENT
  Age: 53 Year
  Sex: Male

DRUGS (1)
  1. XALKORI [Suspect]
     Active Substance: CRIZOTINIB
     Indication: Small cell lung cancer
     Dosage: 250 MG, 2X/DAY
     Route: 048
     Dates: start: 20240201

REACTIONS (1)
  - Death [Fatal]
